FAERS Safety Report 8848840 (Version 1)
Quarter: 2012Q4

REPORT INFORMATION
  Report Type: Spontaneous
  Country: US (occurrence: None)
  Receive Date: 20121015
  Receipt Date: 20121015
  Transmission Date: 20130627
  Serious: Yes (Death, Hospitalization, Other)
  Sender: FDA-Public Use
  Company Number: 2012P1060591

PATIENT
  Age: 24 Year
  Sex: Female

DRUGS (4)
  1. CITALOPRAM [Suspect]
     Indication: DEPRESSION
  2. BUPROPION [Suspect]
     Indication: DEPRESSION
  3. CLONAZEPAM [Concomitant]
  4. TRAZODONE [Concomitant]

REACTIONS (18)
  - Unresponsive to stimuli [None]
  - No therapeutic response [None]
  - Depressed level of consciousness [None]
  - Miosis [None]
  - Peripheral coldness [None]
  - Flushing [None]
  - Areflexia [None]
  - Hypotension [None]
  - Electrocardiogram QT prolonged [None]
  - Grand mal convulsion [None]
  - Blood alcohol increased [None]
  - Incorrect dose administered [None]
  - Electrocardiogram QRS complex prolonged [None]
  - Pupil fixed [None]
  - Corneal reflex decreased [None]
  - Drug level above therapeutic [None]
  - Cardiotoxicity [None]
  - Toxicity to various agents [None]
